FAERS Safety Report 10018656 (Version 1)
Quarter: 2014Q1

REPORT INFORMATION
  Report Type: Spontaneous
  Country: US (occurrence: US)
  Receive Date: 20140318
  Receipt Date: 20140318
  Transmission Date: 20141002
  Serious: No
  Sender: FDA-Public Use
  Company Number: US-B.I. PHARMACEUTICALS,INC./RIDGEFIELD-2014-BI-10608BP

PATIENT
  Age: 57 Year
  Sex: Female
  Weight: 47 kg

DRUGS (4)
  1. SPIRIVA [Suspect]
     Indication: TRAUMATIC LUNG INJURY
     Dosage: 18 MCG
     Route: 055
     Dates: start: 20140306
  2. ASMANEX [Concomitant]
     Route: 065
  3. XOPENEX [Concomitant]
     Route: 065
  4. METHYLPREDNISOLONE [Concomitant]
     Route: 065

REACTIONS (2)
  - Throat tightness [Not Recovered/Not Resolved]
  - Off label use [Unknown]
